FAERS Safety Report 4826757-3 (Version None)
Quarter: 2005Q4

REPORT INFORMATION
  Report Type: 
  Country: None (occurrence: None)
  Receive Date: 20051111
  Receipt Date: 20051111
  Transmission Date: 20060501
  Serious: Yes (Hospitalization, Other)
  Sender: FDA-Public Use
  Company Number: None

PATIENT
  Sex: Male
  Weight: 90.68 kg

DRUGS (4)
  1. FLUOROURACIL [Suspect]
     Indication: COLORECTAL CANCER
     Dosage: SEE IMAGE
     Route: 042
     Dates: start: 20051004, end: 20051004
  2. LEUCOVORIN CALCIUM [Suspect]
     Dosage: SEE IMAGE
     Dates: end: 20051004
  3. ELOXATIN [Suspect]
     Dosage: SEE IMAGE
     Dates: end: 20050503
  4. FIBER CON [Concomitant]

REACTIONS (4)
  - ABDOMINAL PAIN LOWER [None]
  - DEHYDRATION [None]
  - DIARRHOEA [None]
  - DISEASE PROGRESSION [None]
